FAERS Safety Report 9989616 (Version 1)
Quarter: 2014Q1

REPORT INFORMATION
  Report Type: Spontaneous
  Country: US (occurrence: None)
  Receive Date: 20140123
  Receipt Date: 20140123
  Transmission Date: 20141002
  Serious: Yes (Hospitalization)
  Sender: FDA-Public Use
  Company Number: UTC-039323

PATIENT
  Age: 61 Year
  Sex: Female
  Weight: 65.9 kg

DRUGS (3)
  1. REMODULIN [Suspect]
     Indication: COR PULMONALE CHRONIC
     Dosage: 73/44 UG/KG (0.051 UG/KG, 1 IN 1 MIN, INTRAVENOUS DRIP 22/JUL/2013 ONGOING THERAPY  DATES
     Route: 041
     Dates: start: 20130722
  2. REVATION (SILDENAFIL CITRATE) [Concomitant]
  3. WARFARIN  (UNKNOWN) [Concomitant]

REACTIONS (1)
  - Injection site infection [None]
